FAERS Safety Report 8523158-1 (Version None)
Quarter: 2012Q3

REPORT INFORMATION
  Report Type: 
  Country: None (occurrence: None)
  Receive Date: 20120709
  Receipt Date: 20120625
  Transmission Date: 20120928
  Serious: Yes (Other)
  Sender: FDA-Public Use
  Company Number: US-008212

PATIENT
  Age: 12 Year
  Sex: Male
  Weight: 21.9 kg

DRUGS (3)
  1. SOMATROPIN RDNA [Suspect]
     Indication: GROWTH HORMONE DEFICIENCY
     Dosage: 1.9 MG QD SUBCUTANEOUS
     Route: 058
     Dates: start: 20081116, end: 20120412
  2. LEVOTHYROXINE SODIUM [Concomitant]
  3. HYDROCORTISONE [Concomitant]

REACTIONS (4)
  - PRIMARY HYPOTHYROIDISM [None]
  - BLOOD CORTICOTROPHIN DECREASED [None]
  - MEDULLOBLASTOMA RECURRENT [None]
  - SECONDARY HYPOTHYROIDISM [None]
